FAERS Safety Report 5647869-0 (Version None)
Quarter: 2008Q1

REPORT INFORMATION
  Report Type: 
  Country: None (occurrence: None)
  Receive Date: 20080228
  Receipt Date: 20080215
  Transmission Date: 20080703
  Serious: Yes (Disabling)
  Sender: FDA-Public Use
  Company Number: 024274

PATIENT
  Sex: Female

DRUGS (3)
  1. CARBAMAZEPINE [Suspect]
     Indication: BIPOLAR DISORDER
     Dosage: 200 MG, BID
  2. NORTRIPTYLINE HCL [Concomitant]
  3. LITHIUM CARBONATE [Concomitant]

REACTIONS (2)
  - FRUSTRATION [None]
  - HEARING IMPAIRED [None]
